FAERS Safety Report 11813382 (Version 1)
Quarter: 2015Q4

REPORT INFORMATION
  Report Type: Spontaneous
  Country: US (occurrence: None)
  Receive Date: 20151207
  Receipt Date: 20151207
  Transmission Date: 20160305
  Serious: Yes (Other)
  Sender: FDA-Public Use
  Company Number: None

PATIENT
  Age: 74 Year
  Sex: Female
  Weight: 81.19 kg

DRUGS (11)
  1. BILBERRY [Concomitant]
     Active Substance: BILBERRY
  2. COENZYME Q10 [Concomitant]
     Active Substance: UBIDECARENONE
  3. ULTRA [Concomitant]
  4. SESAME OIL [Concomitant]
     Active Substance: SESAME OIL
  5. HYZAAR [Concomitant]
     Active Substance: HYDROCHLOROTHIAZIDE\LOSARTAN POTASSIUM
  6. VITAMIN D3 [Concomitant]
     Active Substance: CHOLECALCIFEROL
  7. OMEGA-3-FISH OIL-VIT D3 [Concomitant]
  8. CAPECITABINE 500MG GENENTECH [Suspect]
     Active Substance: CAPECITABINE
     Indication: NEOPLASM MALIGNANT
     Route: 048
     Dates: start: 20150826, end: 20151116
  9. FELODIPINEEXTENDED-RELEASE TABLETS [Concomitant]
     Active Substance: FELODIPINE
  10. VITAMIN B-100 [Concomitant]
  11. L-CARNITINE [Concomitant]
     Active Substance: LEVOCARNITINE

REACTIONS (1)
  - Stevens-Johnson syndrome [None]
